FAERS Safety Report 8384825-6 (Version None)
Quarter: 2012Q2

REPORT INFORMATION
  Report Type: 
  Country: None (occurrence: None)
  Receive Date: 20120524
  Receipt Date: 20120522
  Transmission Date: 20120825
  Serious: Yes (Death, Hospitalization)
  Sender: FDA-Public Use
  Company Number: US-B.I. PHARMACEUTICALS,INC./RIDGEFIELD-2012-BP-07179BP

PATIENT
  Age: 90 Year
  Sex: Female

DRUGS (9)
  1. LOTENSIN [Concomitant]
  2. CALCIUM [Concomitant]
     Dosage: 1200 MG
  3. FOSAMAX [Concomitant]
  4. TYLENOL [Concomitant]
     Indication: ARTHRITIS
  5. HYDROCHLOROTHIAZIDE [Concomitant]
  6. FLUOXETINE [Concomitant]
     Dosage: 75 MG
  7. VITAMIN D [Concomitant]
     Dosage: 800 U
  8. PRADAXA [Suspect]
     Indication: ATRIAL FIBRILLATION
     Dosage: 150 MG
     Route: 048
     Dates: start: 20110401
  9. METOPROLOL [Concomitant]
     Dosage: 25 MG

REACTIONS (3)
  - HYPOVOLAEMIC SHOCK [None]
  - GASTROINTESTINAL HAEMORRHAGE [None]
  - RECTAL HAEMORRHAGE [None]
